FAERS Safety Report 20566931 (Version 1)
Quarter: 2022Q1

REPORT INFORMATION
  Report Type: Spontaneous
  Country: US (occurrence: None)
  Receive Date: 20220308
  Receipt Date: 20220308
  Transmission Date: 20220423
  Serious: No
  Sender: FDA-Public Use
  Company Number: None

PATIENT
  Age: 73 Year
  Sex: Female

DRUGS (1)
  1. BENLYSTA [Suspect]
     Active Substance: BELIMUMAB
     Indication: Systemic lupus erythematosus
     Dosage: 200MG EVERY 7 DAYS ?
     Route: 058
     Dates: start: 20220105

REACTIONS (4)
  - Joint swelling [None]
  - Arthralgia [None]
  - Peripheral swelling [None]
  - Rash pruritic [None]

NARRATIVE: CASE EVENT DATE: 20220201
